FAERS Safety Report 18593412 (Version 2)
Quarter: 2020Q4

REPORT INFORMATION
  Report Type: Spontaneous
  Country: JP (occurrence: JP)
  Receive Date: 20201209
  Receipt Date: 20201225
  Transmission Date: 20210114
  Serious: Yes (Other)
  Sender: FDA-Public Use
  Company Number: JP-GLAXOSMITHKLINE-JP2020239219

PATIENT
  Age: 88 Year
  Sex: Female

DRUGS (2)
  1. SAMTIREL [Suspect]
     Active Substance: ATOVAQUONE
     Indication: PNEUMOCYSTIS JIROVECII PNEUMONIA
     Dosage: 5 ML, BID
     Route: 048
  2. PENTAMIDINE ISETIONATE [Concomitant]
     Active Substance: PENTAMIDINE ISETHIONATE
     Indication: PNEUMOCYSTIS JIROVECII PNEUMONIA
     Dosage: UNK

REACTIONS (4)
  - Pancreatic enzymes increased [Unknown]
  - Gastrointestinal haemorrhage [Unknown]
  - Hepatic function abnormal [Unknown]
  - Ischaemic hepatitis [Unknown]
